FAERS Safety Report 21062560 (Version 2)
Quarter: 2022Q3

REPORT INFORMATION
  Report Type: Spontaneous
  Country: SI (occurrence: SI)
  Receive Date: 20220711
  Receipt Date: 20220721
  Transmission Date: 20221026
  Serious: Yes (Hospitalization, Other)
  Sender: FDA-Public Use
  Company Number: SI-009507513-2207SVN002130

PATIENT
  Age: 64 Year
  Sex: Female

DRUGS (1)
  1. PEMBROLIZUMAB [Suspect]
     Active Substance: PEMBROLIZUMAB
     Indication: Metastatic malignant melanoma
     Dosage: 400 MILLIGRAM, EVERY 4 WEEKS
     Dates: start: 20210715, end: 20211119

REACTIONS (10)
  - Hypercalcaemia [Unknown]
  - Neuropathy peripheral [Unknown]
  - Primary adrenal insufficiency [Unknown]
  - Lymphocytic hypophysitis [Unknown]
  - Immune-mediated thyroiditis [Unknown]
  - Guillain-Barre syndrome [Unknown]
  - Hypothyroidism [Unknown]
  - General physical health deterioration [Unknown]
  - BRAF gene mutation [Unknown]
  - Product use issue [Unknown]
